FAERS Safety Report 19730149 (Version 2)
Quarter: 2021Q3

REPORT INFORMATION
  Report Type: Report from Study
  Country: US (occurrence: US)
  Receive Date: 20210820
  Receipt Date: 20210825
  Transmission Date: 20211014
  Serious: Yes (Other)
  Sender: FDA-Public Use
  Company Number: US-TAIHO ONCOLOGY  INC-EU-2021-02512

PATIENT
  Age: 78 Year
  Sex: Female
  Weight: 54.48 kg

DRUGS (3)
  1. ZOFRAN [Concomitant]
     Active Substance: ONDANSETRON HYDROCHLORIDE
  2. LONSURF [Suspect]
     Active Substance: TIPIRACIL HYDROCHLORIDE\TRIFLURIDINE
     Indication: METASTATIC GASTRIC CANCER
     Dosage: CYCLE UNKNOWN
     Route: 048
  3. DILTIAZEM. [Concomitant]
     Active Substance: DILTIAZEM
     Indication: HYPERTENSION

REACTIONS (6)
  - Herpes zoster [Unknown]
  - Pruritus [Unknown]
  - Pain in extremity [Unknown]
  - Arthropod bite [Unknown]
  - Blister [Unknown]
  - Neuropathy peripheral [Unknown]

NARRATIVE: CASE EVENT DATE: 2021
